FAERS Safety Report 16357963 (Version 1)
Quarter: 2019Q2

REPORT INFORMATION
  Report Type: Spontaneous
  Country: US (occurrence: US)
  Receive Date: 20190527
  Receipt Date: 20190527
  Transmission Date: 20190711
  Serious: Yes (Hospitalization, Disabling, Other)
  Sender: FDA-Public Use
  Company Number: US-PFIZER INC-2019211762

PATIENT
  Age: 67 Year
  Sex: Female
  Weight: 120 kg

DRUGS (2)
  1. MECLIZINE [Concomitant]
     Active Substance: MECLIZINE HYDROCHLORIDE
     Dosage: 25 MG, 3X/DAY
  2. GABAPENTIN. [Suspect]
     Active Substance: GABAPENTIN
     Indication: PAIN
     Dosage: 300 MG, 3X/DAY
     Route: 048

REACTIONS (7)
  - Off label use [Unknown]
  - Nervous system disorder [Unknown]
  - Vertigo [Unknown]
  - Fall [Unknown]
  - Gait disturbance [Unknown]
  - Hip fracture [Unknown]
  - Product use in unapproved indication [Unknown]
